FAERS Safety Report 5093586-8 (Version None)
Quarter: 2006Q3

REPORT INFORMATION
  Report Type: 
  Country: None (occurrence: None)
  Receive Date: 20060829
  Receipt Date: 20060811
  Transmission Date: 20061208
  Serious: Yes (Hospitalization, Other)
  Sender: FDA-Public Use
  Company Number: US200606000727

PATIENT
  Age: 85 Year
  Sex: Female
  Weight: 68.9 kg

DRUGS (8)
  1. FORTEO [Suspect]
     Indication: OSTEOPOROSIS
     Dosage: 20 UG DAILY (1/D)
     Dates: start: 20050701
  2. FORTEO [Concomitant]
  3. METOPROLOL TARTRATE [Concomitant]
  4. LEXAPRO (ESCITALOPRAM) [Concomitant]
  5. POTASSIUM CHLORIDE [Concomitant]
  6. PRILOSEC [Concomitant]
  7. PRINZIDE (HYDROCHLOROTHIAZIE, LISINOPRIL) [Concomitant]
  8. PREMARIN [Concomitant]

REACTIONS (2)
  - ISCHAEMIC STROKE [None]
  - PHARMACEUTICAL PRODUCT COMPLAINT [None]
